FAERS Safety Report 6604444-9 (Version None)
Quarter: 2010Q1

REPORT INFORMATION
  Report Type: 
  Country: None (occurrence: None)
  Receive Date: 20100226
  Receipt Date: 20091013
  Transmission Date: 20100710
  Serious: Yes (Other)
  Sender: FDA-Public Use
  Company Number: A0811602A

PATIENT
  Age: 26 Year
  Sex: Female

DRUGS (4)
  1. LAMICTAL CD [Suspect]
     Indication: PARTIAL SEIZURES
     Dosage: 500MG VARIABLE DOSE
     Route: 048
     Dates: start: 19990801, end: 20090601
  2. LAMOTRIGINE [Suspect]
     Indication: PARTIAL SEIZURES
     Route: 048
     Dates: start: 20090601, end: 20090701
  3. LAMICTAL CD [Suspect]
     Route: 048
     Dates: start: 20090701
  4. PROGESTERONE [Concomitant]

REACTIONS (2)
  - CONVULSION [None]
  - PARTIAL SEIZURES [None]
